FAERS Safety Report 13754632 (Version 1)
Quarter: 2017Q3

REPORT INFORMATION
  Report Type: Spontaneous
  Country: DE (occurrence: DE)
  Receive Date: 20170714
  Receipt Date: 20170714
  Transmission Date: 20171127
  Serious: Yes (Death)
  Sender: FDA-Public Use
  Company Number: DE-ROCHE-1962528

PATIENT
  Age: 58 Year
  Sex: Female
  Weight: 105 kg

DRUGS (7)
  1. PREDNISOLON [Concomitant]
     Active Substance: PREDNISOLONE
     Route: 048
  2. METHOTREXATE SODIUM. [Concomitant]
     Active Substance: METHOTREXATE SODIUM
     Route: 058
  3. ETORICOXIB [Concomitant]
     Active Substance: ETORICOXIB
     Route: 048
  4. ROACTEMRA [Suspect]
     Active Substance: TOCILIZUMAB
     Indication: RHEUMATOID ARTHRITIS
     Route: 058
     Dates: start: 20170621
  5. FOLSAN [Concomitant]
     Active Substance: FOLIC ACID
     Route: 048
  6. VIGANTOLETTEN [Concomitant]
     Active Substance: CHOLECALCIFEROL
     Route: 048
  7. EUTHYROX [Concomitant]
     Active Substance: LEVOTHYROXINE SODIUM
     Route: 048

REACTIONS (12)
  - Hypotension [Fatal]
  - Septic shock [Fatal]
  - Tachypnoea [Fatal]
  - Cardiovascular insufficiency [Fatal]
  - Multiple organ dysfunction syndrome [Fatal]
  - Arthralgia [Fatal]
  - Diarrhoea [Fatal]
  - Somnolence [Fatal]
  - Pain in extremity [Fatal]
  - Asthenia [Fatal]
  - Disseminated intravascular coagulation [Fatal]
  - Tachycardia [Fatal]

NARRATIVE: CASE EVENT DATE: 20170626
